FAERS Safety Report 6339338-X (Version None)
Quarter: 2009Q3

REPORT INFORMATION
  Report Type: 
  Country: None (occurrence: None)
  Receive Date: 20090903
  Receipt Date: 20090826
  Transmission Date: 20100115
  Serious: Yes (Life-Threatening)
  Sender: FDA-Public Use
  Company Number: B0590199A

PATIENT
  Sex: Female

DRUGS (4)
  1. AUGMENTIN '125' [Suspect]
     Route: 042
     Dates: start: 20090327, end: 20090327
  2. DIPRIVAN [Concomitant]
     Route: 042
     Dates: start: 20090327
  3. RAPIFEN [Concomitant]
     Route: 042
     Dates: start: 20090327
  4. LIDOCAINE [Concomitant]
     Dates: start: 20090327

REACTIONS (5)
  - ANAPHYLACTIC SHOCK [None]
  - BRONCHOSPASM [None]
  - CIRCULATORY COLLAPSE [None]
  - SKIN TEST POSITIVE [None]
  - TACHYCARDIA [None]
